FAERS Safety Report 9104041 (Version 3)
Quarter: 2013Q2

REPORT INFORMATION
  Report Type: Spontaneous
  Country: US (occurrence: US)
  Receive Date: 20130219
  Receipt Date: 20130410
  Transmission Date: 20140414
  Serious: Yes (Hospitalization)
  Sender: FDA-Public Use
  Company Number: US-ELI_LILLY_AND_COMPANY-US201302004211

PATIENT
  Age: 71 Year
  Sex: Female
  Weight: 93.42 kg

DRUGS (2)
  1. EFFIENT [Suspect]
     Indication: STENT PLACEMENT
     Dosage: 10 MG, UNK
     Dates: start: 20111115
  2. EFFIENT [Suspect]
     Dosage: 60 MG, OTHER

REACTIONS (1)
  - Angina unstable [Unknown]
